FAERS Safety Report 9729659 (Version 2)
Quarter: 2015Q3

REPORT INFORMATION
  Report Type: Spontaneous
  Country: US (occurrence: US)
  Receive Date: 20131204
  Receipt Date: 20150804
  Transmission Date: 20151125
  Serious: No
  Sender: FDA-Public Use
  Company Number: US-GILEAD-2009-0020906

PATIENT
  Age: 81 Year
  Sex: Female

DRUGS (9)
  1. PROBENECID. [Concomitant]
     Active Substance: PROBENECID
  2. ALTACE [Concomitant]
     Active Substance: RAMIPRIL
  3. COUMADIN [Concomitant]
     Active Substance: WARFARIN SODIUM
  4. COLCHICINE. [Concomitant]
     Active Substance: COLCHICINE
  5. DEMADEX [Concomitant]
     Active Substance: TORSEMIDE
  6. LETAIRIS [Suspect]
     Active Substance: AMBRISENTAN
     Indication: PULMONARY ARTERIAL HYPERTENSION
     Route: 048
     Dates: start: 20090218, end: 20090317
  7. IMDUR [Concomitant]
     Active Substance: ISOSORBIDE MONONITRATE
  8. LOPRESSOR [Concomitant]
     Active Substance: METOPROLOL TARTRATE
  9. ZOCOR [Concomitant]
     Active Substance: SIMVASTATIN

REACTIONS (2)
  - Oedema [Not Recovered/Not Resolved]
  - Oedema peripheral [Not Recovered/Not Resolved]

NARRATIVE: CASE EVENT DATE: 200903
